FAERS Safety Report 8172659-7 (Version None)
Quarter: 2012Q1

REPORT INFORMATION
  Report Type: 
  Country: None (occurrence: None)
  Receive Date: 20120229
  Receipt Date: 20120227
  Transmission Date: 20120608
  Serious: No
  Sender: FDA-Public Use
  Company Number: US-PFIZER INC-2012051840

PATIENT
  Sex: Male

DRUGS (2)
  1. PROPRANOLOL [Suspect]
     Dosage: 80 MG, UNK
  2. ADVIL CONGESTION RELIEF [Suspect]
     Dosage: 200/10 MG, UNK

REACTIONS (1)
  - CHEST DISCOMFORT [None]
